FAERS Safety Report 21400006 (Version 1)
Quarter: 2022Q4

REPORT INFORMATION
  Report Type: Spontaneous
  Country: FR (occurrence: FR)
  Receive Date: 20221002
  Receipt Date: 20221002
  Transmission Date: 20230112
  Serious: Yes (Hospitalization)
  Sender: FDA-Public Use
  Company Number: None

PATIENT
  Age: 59 Year
  Sex: Male
  Weight: 87 kg

DRUGS (2)
  1. PAROXETINE [Suspect]
     Active Substance: PAROXETINE
     Indication: Bipolar II disorder
     Dosage: PAROXETINE HYDROCHLORIDE, ANHYDROUS, UNIT DOSE: 20 MG, FREQUENCY TIME : 1 DAY, DURATION : 36 DAYS
     Route: 065
     Dates: start: 20220708, end: 20220813
  2. LAMOTRIGINE [Suspect]
     Active Substance: LAMOTRIGINE
     Indication: Bipolar II disorder
     Dosage: UNIT DOSE: 150 MG, FREQUENCY TIME : 1 DAY, DURATION : 36 DAYS
     Route: 065
     Dates: start: 20220708, end: 20220813

REACTIONS (1)
  - Drug reaction with eosinophilia and systemic symptoms [Recovering/Resolving]

NARRATIVE: CASE EVENT DATE: 20220813
